FAERS Safety Report 20549422 (Version 1)
Quarter: 2022Q1

REPORT INFORMATION
  Report Type: Spontaneous
  Country: US (occurrence: US)
  Receive Date: 20220303
  Receipt Date: 20220303
  Transmission Date: 20220423
  Serious: No
  Sender: FDA-Public Use
  Company Number: US-ALLERGAN-2123388US

PATIENT
  Age: 84 Year
  Sex: Male

DRUGS (1)
  1. RESTASIS [Suspect]
     Active Substance: CYCLOSPORINE
     Indication: Dry eye
     Dosage: 0.5 TWICE PER DAY
     Route: 047
     Dates: start: 20210525, end: 202106

REACTIONS (3)
  - Ulcerative keratitis [Recovering/Resolving]
  - Foreign body sensation in eyes [Recovering/Resolving]
  - Vision blurred [Recovering/Resolving]

NARRATIVE: CASE EVENT DATE: 20210725
